FAERS Safety Report 14298404 (Version 1)
Quarter: 2017Q4

REPORT INFORMATION
  Report Type: Spontaneous
  Country: US (occurrence: US)
  Receive Date: 20171218
  Receipt Date: 20171218
  Transmission Date: 20180321
  Serious: Yes (Hospitalization)
  Sender: FDA-Public Use
  Company Number: US-009507513-1712USA005214

PATIENT
  Sex: Female

DRUGS (1)
  1. COZAAR [Suspect]
     Active Substance: LOSARTAN POTASSIUM
     Route: 048

REACTIONS (5)
  - Dysstasia [Unknown]
  - Dizziness [Unknown]
  - Adverse event [Unknown]
  - Hypotension [Unknown]
  - Blood pressure increased [Unknown]
